FAERS Safety Report 4854310-4 (Version None)
Quarter: 2005Q4

REPORT INFORMATION
  Report Type: 
  Country: None (occurrence: None)
  Receive Date: 20051213
  Receipt Date: 20051213
  Transmission Date: 20060501
  Serious: Yes (Hospitalization)
  Sender: FDA-Public Use
  Company Number: None

PATIENT
  Age: 94 Year
  Sex: Male
  Weight: 73.0291 kg

DRUGS (8)
  1. MEGESTROL   200 MG/5 ML [Suspect]
     Indication: DECREASED APPETITE
     Dosage: 400 MG/10 ML DAILY PO
     Route: 048
     Dates: start: 20050729, end: 20050907
  2. SONNOSIDES [Concomitant]
  3. VERAPAMIL [Concomitant]
  4. TERAZOSIN [Concomitant]
  5. SIMVASTATIN [Concomitant]
  6. LISINOPRIL [Concomitant]
  7. HYDROPHILLIC OINTMENT [Concomitant]
  8. GLYBURIDE [Concomitant]

REACTIONS (4)
  - HYPERKALAEMIA [None]
  - PULMONARY EMBOLISM [None]
  - PULMONARY HYPERTENSION [None]
  - RENAL FAILURE [None]
